FAERS Safety Report 14479928 (Version 1)
Quarter: 2018Q1

REPORT INFORMATION
  Report Type: Spontaneous
  Country: US (occurrence: US)
  Receive Date: 20180201
  Receipt Date: 20180201
  Transmission Date: 20180509
  Serious: Yes (Other)
  Sender: FDA-Public Use
  Company Number: None

PATIENT
  Age: 62 Year
  Sex: Male
  Weight: 150.75 kg

DRUGS (5)
  1. APAP [Concomitant]
     Active Substance: ACETAMINOPHEN
  2. DULOXETINE. [Concomitant]
     Active Substance: DULOXETINE
  3. NINLARO [Suspect]
     Active Substance: IXAZOMIB CITRATE
     Indication: PLASMA CELL MYELOMA
     Route: 048
     Dates: start: 20170808, end: 20180104
  4. GLIPIZIDE. [Concomitant]
     Active Substance: GLIPIZIDE
  5. GABAPENTIN. [Concomitant]
     Active Substance: GABAPENTIN

REACTIONS (1)
  - Disease progression [None]
